FAERS Safety Report 6717904-7 (Version None)
Quarter: 2010Q2

REPORT INFORMATION
  Report Type: 
  Country: None (occurrence: None)
  Receive Date: 20100510
  Receipt Date: 20100223
  Transmission Date: 20101027
  Serious: Yes (Other)
  Sender: FDA-Public Use
  Company Number: PHHY2010IT11949

PATIENT
  Age: 44 Year
  Sex: Male

DRUGS (4)
  1. SANDOSTATIN LAR [Suspect]
     Indication: ACROMEGALY
     Dosage: 20 MG EVERY 28 DAYS
  2. SANDOSTATIN LAR [Suspect]
     Dosage: 30 MG EVERY 28 DAYS
  3. SANDOSTATIN LAR [Suspect]
     Dosage: 40 MG EVERY 28 DAYS
  4. SANDOSTATIN LAR [Suspect]
     Dosage: 40 MG EVERY 28 DAYS

REACTIONS (3)
  - ABDOMINAL PAIN [None]
  - ABDOMINAL PAIN UPPER [None]
  - PITUITARY TUMOUR REMOVAL [None]
